FAERS Safety Report 5788652-5 (Version None)
Quarter: 2008Q2

REPORT INFORMATION
  Report Type: 
  Country: None (occurrence: None)
  Receive Date: 20080626
  Receipt Date: 20080616
  Transmission Date: 20081010
  Serious: Yes (Other)
  Sender: FDA-Public Use
  Company Number: US-ABBOTT-08P-163-0457079-00

PATIENT
  Sex: Female
  Weight: 39.498 kg

DRUGS (3)
  1. DEPAKOTE [Suspect]
     Indication: MYOCLONUS
     Route: 048
  2. DEPAKOTE [Suspect]
  3. DEPAKOTE [Suspect]

REACTIONS (4)
  - HYPOXIA [None]
  - LIPASE INCREASED [None]
  - MYOCLONUS [None]
  - UNEVALUABLE EVENT [None]
